FAERS Safety Report 9467672 (Version 2)
Quarter: 2013Q3

REPORT INFORMATION
  Report Type: Spontaneous
  Country: JP (occurrence: JP)
  Receive Date: 20130821
  Receipt Date: 20130821
  Transmission Date: 20140515
  Serious: Yes (Death)
  Sender: FDA-Public Use
  Company Number: JP-ELI_LILLY_AND_COMPANY-JP201202000072

PATIENT
  Age: 69 Year
  Sex: Female
  Weight: 43 kg

DRUGS (12)
  1. ADCIRCA [Suspect]
     Indication: PULMONARY ARTERIAL HYPERTENSION
     Dosage: 10 MG, UNK
     Route: 048
     Dates: start: 20100320, end: 20100326
  2. ADCIRCA [Suspect]
     Dosage: 20 MG, UNK
     Route: 048
     Dates: start: 20100327, end: 20100331
  3. ADCIRCA [Suspect]
     Dosage: 40 MG, UNK
     Route: 048
     Dates: start: 20100401, end: 20100513
  4. REVATIO [Concomitant]
     Indication: PULMONARY ARTERIAL HYPERTENSION
     Dosage: UNK
     Dates: start: 20091221, end: 20100319
  5. BERAPROST [Concomitant]
     Indication: PULMONARY ARTERIAL HYPERTENSION
     Dosage: 120 UG, UNK
     Route: 048
  6. TRACLEER [Concomitant]
     Indication: PULMONARY ARTERIAL HYPERTENSION
     Dosage: 93.75 MG, UNK
     Route: 048
  7. SELBEX [Concomitant]
     Indication: SCLERODERMA
     Dosage: 150 MG, UNK
     Route: 048
  8. FOSAMAC [Concomitant]
     Indication: PROPHYLAXIS
     Dosage: 35 MG, UNK
     Route: 048
  9. MUCOSOLVAN [Concomitant]
     Indication: PULMONARY FIBROSIS
     Dosage: 45 MG, UNK
     Route: 048
  10. HOKUNALIN [Concomitant]
     Indication: ASTHMA
     Dosage: 0.5 MG, UNK
     Route: 062
  11. QVAR [Concomitant]
     Indication: ASTHMA
     Dosage: 2 DF, UNK
     Route: 055
     Dates: start: 20100502
  12. ENDOXAN [Concomitant]
     Indication: PULMONARY FIBROSIS
     Dosage: 1200 MG/M2, MONTHLY (1/M)
     Route: 042

REACTIONS (1)
  - Disease progression [Fatal]
